FAERS Safety Report 7005967-3 (Version None)
Quarter: 2010Q3

REPORT INFORMATION
  Report Type: 
  Country: None (occurrence: None)
  Receive Date: 20100921
  Receipt Date: 20100909
  Transmission Date: 20110219
  Serious: Yes (Hospitalization)
  Sender: FDA-Public Use
  Company Number: US-ELI_LILLY_AND_COMPANY-US201009003894

PATIENT
  Sex: Female

DRUGS (6)
  1. FORTEO [Suspect]
     Indication: OSTEOPOROSIS
     Dosage: 20 UG, DAILY (1/D)
  2. DIOVAN [Concomitant]
     Indication: BLOOD PRESSURE
  3. CELEBREX [Concomitant]
  4. FISH OIL [Concomitant]
  5. GINSENG /00480901/ [Concomitant]
  6. GINKO BILOBA [Concomitant]

REACTIONS (10)
  - ARTHRALGIA [None]
  - CONTUSION [None]
  - DIARRHOEA [None]
  - DIZZINESS [None]
  - EYE PRURITUS [None]
  - FAECAL INCONTINENCE [None]
  - FALL [None]
  - PAIN [None]
  - RHINORRHOEA [None]
  - THROAT IRRITATION [None]
